FAERS Safety Report 7212009-3 (Version None)
Quarter: 2011Q1

REPORT INFORMATION
  Report Type: 
  Country: None (occurrence: None)
  Receive Date: 20110106
  Receipt Date: 20101229
  Transmission Date: 20110831
  Serious: Yes (Hospitalization)
  Sender: FDA-Public Use
  Company Number: US-BIOGENIDEC-2011BI000105

PATIENT
  Age: 43 Year
  Sex: Female
  Weight: 63 kg

DRUGS (7)
  1. ADVIL [Concomitant]
     Indication: PAIN IN EXTREMITY
     Route: 048
     Dates: start: 20070101
  2. NAPROXEN [Concomitant]
     Indication: PAIN IN EXTREMITY
     Route: 048
     Dates: start: 20070101
  3. EFFEXOR [Concomitant]
     Indication: DEPRESSION
     Route: 048
  4. AVONEX [Suspect]
     Indication: MULTIPLE SCLEROSIS
     Route: 030
     Dates: start: 20080312
  5. NAPROXEN [Concomitant]
     Indication: INFLAMMATION
     Route: 048
     Dates: start: 20070101
  6. ADVIL [Concomitant]
     Indication: INFLAMMATION
     Route: 048
     Dates: start: 20070101
  7. BACLOFEN [Concomitant]
     Indication: MUSCLE SPASMS
     Route: 048
     Dates: start: 20070101

REACTIONS (12)
  - EMOTIONAL DISTRESS [None]
  - HEMICEPHALALGIA [None]
  - MEMORY IMPAIRMENT [None]
  - MUSCULAR WEAKNESS [None]
  - FATIGUE [None]
  - STRESS [None]
  - BALANCE DISORDER [None]
  - DRUG INEFFECTIVE [None]
  - MULTIPLE SCLEROSIS RELAPSE [None]
  - GAIT DISTURBANCE [None]
  - INAPPROPRIATE SCHEDULE OF DRUG ADMINISTRATION [None]
  - DEPRESSION [None]
